FAERS Safety Report 19140989 (Version 1)
Quarter: 2021Q2

REPORT INFORMATION
  Report Type: Spontaneous
  Country: US (occurrence: US)
  Receive Date: 20210415
  Receipt Date: 20210415
  Transmission Date: 20210717
  Serious: No
  Sender: FDA-Public Use
  Company Number: US-TERSERA THERAPEUTICS LLC-2021TRS000309

PATIENT

DRUGS (4)
  1. ZARXIO [Suspect]
     Active Substance: FILGRASTIM-SNDZ
     Indication: WHITE BLOOD CELL COUNT DECREASED
     Dosage: UNK
     Route: 065
  2. MORPHINE [Suspect]
     Active Substance: MORPHINE
     Indication: BONE PAIN
     Dosage: UNK
     Route: 065
  3. XERMELO [Suspect]
     Active Substance: TELOTRISTAT ETHYL
     Dosage: 250 MG, TID (1 TABLET BY MOUTH 3 TIMES DAILY.)
     Route: 048
     Dates: start: 20210222
  4. XERMELO [Suspect]
     Active Substance: TELOTRISTAT ETHYL
     Indication: GASTROINTESTINAL NEOPLASM
     Dosage: 250 MG, TID (TAKE 1 TABLET BY MOUTH 3 TIMES DAILY)
     Route: 048
     Dates: start: 20200930

REACTIONS (8)
  - Diarrhoea [Unknown]
  - Laboratory test abnormal [Unknown]
  - Blood chromogranin A increased [Unknown]
  - Blood alkaline phosphatase increased [Unknown]
  - Urinary tract infection [Unknown]
  - Bone pain [Unknown]
  - White blood cell count decreased [Unknown]
  - Constipation [Unknown]
